FAERS Safety Report 4883161-X (Version None)
Quarter: 2006Q1

REPORT INFORMATION
  Report Type: 
  Country: None (occurrence: None)
  Receive Date: 20060117
  Receipt Date: 20060117
  Transmission Date: 20060701
  Serious: Yes (Death)
  Sender: FDA-Public Use
  Company Number: None

PATIENT
  Age: 2 Month
  Sex: Male

DRUGS (5)
  1. CARBAXEFED DM/RF [Suspect]
  2. CHILDREN'S ADVIL [Suspect]
  3. CHILDREN'S MOTRIN [Suspect]
  4. ADVIL [Concomitant]
  5. MOTRIN [Concomitant]

REACTIONS (2)
  - CONSTIPATION [None]
  - PHARMACEUTICAL PRODUCT COMPLAINT [None]
